FAERS Safety Report 5645075-7 (Version None)
Quarter: 2008Q1

REPORT INFORMATION
  Report Type: 
  Country: None (occurrence: None)
  Receive Date: 20080131
  Receipt Date: 20071030
  Transmission Date: 20080703
  Serious: No
  Sender: FDA-Public Use
  Company Number: PHEH2007US14216

PATIENT
  Sex: Female

DRUGS (4)
  1. TEKTURNA [Suspect]
     Indication: HYPERTENSION
     Dosage: 150 MG
  2. EXFORGE [Suspect]
     Dosage: ^320MG^, 1/2 DOSE
  3. ATENOLOL [Suspect]
     Indication: HYPERTENSION
     Dosage: 25MG, 1/2 DOSE
  4. THYROID TAB [Concomitant]

REACTIONS (1)
  - BLOOD PRESSURE INADEQUATELY CONTROLLED [None]
